FAERS Safety Report 7940658-3 (Version None)
Quarter: 2011Q4

REPORT INFORMATION
  Report Type: 
  Country: None (occurrence: None)
  Receive Date: 20111128
  Receipt Date: 20111122
  Transmission Date: 20120403
  Serious: Yes (Death)
  Sender: FDA-Public Use
  Company Number: FR-JNJFOC-20110812292

PATIENT

DRUGS (22)
  1. RITUXIMAB [Suspect]
     Route: 042
  2. BLEOMYCIN SULFATE [Suspect]
     Route: 042
  3. DOXORUBICIN HCL [Suspect]
     Route: 042
  4. DOXORUBICIN HCL [Suspect]
     Route: 042
  5. DOXORUBICIN HCL [Suspect]
     Route: 042
  6. RITUXIMAB [Suspect]
     Indication: DIFFUSE LARGE B-CELL LYMPHOMA
     Route: 042
  7. RITUXIMAB [Suspect]
     Route: 042
  8. CYCLOPHOSPHAMIDE [Suspect]
     Route: 042
  9. ELDISINE [Suspect]
     Indication: DIFFUSE LARGE B-CELL LYMPHOMA
     Route: 065
  10. NEUPOGEN [Concomitant]
     Indication: DIFFUSE LARGE B-CELL LYMPHOMA
     Route: 065
  11. BLEOMYCIN SULFATE [Suspect]
     Route: 042
  12. COTRIM [Concomitant]
     Indication: PROPHYLAXIS
     Route: 065
  13. BLEOMYCIN SULFATE [Suspect]
     Route: 042
  14. CYCLOPHOSPHAMIDE [Suspect]
     Route: 042
  15. ACYCLOVIR [Concomitant]
     Indication: PROPHYLAXIS
     Route: 065
  16. CYCLOPHOSPHAMIDE [Suspect]
     Indication: DIFFUSE LARGE B-CELL LYMPHOMA
     Route: 042
  17. CYCLOPHOSPHAMIDE [Suspect]
     Route: 042
  18. PREDNISONE TAB [Suspect]
     Indication: DIFFUSE LARGE B-CELL LYMPHOMA
     Route: 048
  19. METHOTREXATE [Suspect]
     Indication: DIFFUSE LARGE B-CELL LYMPHOMA
     Route: 037
  20. DOXORUBICIN HCL [Suspect]
     Indication: DIFFUSE LARGE B-CELL LYMPHOMA
     Route: 042
  21. RITUXIMAB [Suspect]
     Route: 042
  22. BLEOMYCIN SULFATE [Suspect]
     Indication: DIFFUSE LARGE B-CELL LYMPHOMA
     Route: 042

REACTIONS (1)
  - HAEMORRHAGE [None]
